FAERS Safety Report 9490055 (Version 2)
Quarter: 2013Q3

REPORT INFORMATION
  Report Type: Spontaneous
  Country: US (occurrence: US)
  Receive Date: 20130829
  Receipt Date: 20130829
  Transmission Date: 20140515
  Serious: No
  Sender: FDA-Public Use
  Company Number: US-VERTEX PHARMACEUTICALS INC-AE-2012-005974

PATIENT
  Age: 56 Year
  Sex: Male
  Weight: 91 kg

DRUGS (3)
  1. INCIVEK [Suspect]
     Indication: HEPATITIS C
     Route: 048
     Dates: start: 20120425
  2. PEGASYS [Suspect]
     Indication: HEPATITIS C
     Dates: start: 20120425
  3. RIBAVIRIN [Suspect]
     Indication: HEPATITIS C
     Route: 048
     Dates: start: 20120425

REACTIONS (2)
  - Influenza like illness [Not Recovered/Not Resolved]
  - Drug ineffective [Unknown]
